FAERS Safety Report 12744565 (Version 1)
Quarter: 2016Q3

REPORT INFORMATION
  Report Type: Spontaneous
  Country: US (occurrence: US)
  Receive Date: 20160914
  Receipt Date: 20160914
  Transmission Date: 20161109
  Serious: No
  Sender: FDA-Public Use
  Company Number: US-JAZZ-2016-US-009573

PATIENT
  Age: 61 Year
  Sex: Male

DRUGS (24)
  1. ATENOLOL. [Concomitant]
     Active Substance: ATENOLOL
  2. CINNAMON. [Concomitant]
     Active Substance: CINNAMON
  3. COENZYME Q10 [Concomitant]
     Active Substance: UBIDECARENONE
  4. NATURE-THROID [Concomitant]
     Active Substance: THYROID, PORCINE
  5. TRAMADOL HCL [Concomitant]
     Active Substance: TRAMADOL HYDROCHLORIDE
  6. ALOE VERA [Concomitant]
     Active Substance: ALOE VERA LEAF
  7. ASHWAGANDHA [Concomitant]
     Active Substance: HERBALS
  8. ACETYL-L-CARNITINE HCL [Concomitant]
  9. DIFLUCAN [Concomitant]
     Active Substance: FLUCONAZOLE
  10. REVITALIZING SLEEP [Concomitant]
  11. XYREM [Suspect]
     Active Substance: SODIUM OXYBATE
     Indication: CHRONIC FATIGUE SYNDROME
     Dosage: 3 G, BID
     Route: 048
     Dates: start: 201605, end: 2016
  12. ATIVAN [Concomitant]
     Active Substance: LORAZEPAM
  13. VITAMIN B COMPLEX [Concomitant]
     Active Substance: CYANOCOBALAMIN\DEXPANTHENOL\NIACINAMIDE\PYRIDOXINE HYDROCHLORIDE\RIBOFLAVIN 5^-PHOSPHATE SODIUM\THIAMINE HYDROCHLORIDE\VITAMIN B COMPLEX
  14. CHROMIUM PICOLINATE [Concomitant]
     Active Substance: CHROMIUM PICOLINATE
  15. CURAMIN [Concomitant]
     Active Substance: HERBALS
  16. XYREM [Suspect]
     Active Substance: SODIUM OXYBATE
     Indication: INSOMNIA
     Dosage: 2.25 G, BID
     Route: 048
     Dates: start: 201605, end: 201605
  17. COMPOUNDED T3 [Concomitant]
  18. LIDODERM [Concomitant]
     Active Substance: LIDOCAINE
  19. DIGESTIVE ENZYMES [Concomitant]
     Active Substance: UNSPECIFIED INGREDIENT
  20. FISH OIL CONCENTRATE [Concomitant]
  21. MELATONIN [Concomitant]
     Active Substance: MELATONIN
  22. MULTIVITAMIN [Concomitant]
     Active Substance: VITAMINS
  23. PROBIOTIC [Concomitant]
     Active Substance: PROBIOTICS NOS
  24. VITAMIN B12 [Concomitant]
     Active Substance: CYANOCOBALAMIN

REACTIONS (10)
  - Flushing [Unknown]
  - Oedema [Unknown]
  - Dizziness [Unknown]
  - Tendon pain [Unknown]
  - Tremor [Unknown]
  - Somnolence [Unknown]
  - Palpitations [Unknown]
  - Visual impairment [Unknown]
  - Feeling jittery [Unknown]
  - Agitation [Unknown]

NARRATIVE: CASE EVENT DATE: 201605
